FAERS Safety Report 18288238 (Version 1)
Quarter: 2020Q3

REPORT INFORMATION
  Report Type: Spontaneous
  Country: US (occurrence: US)
  Receive Date: 20200919
  Receipt Date: 20200919
  Transmission Date: 20201103
  Serious: Yes (Death)
  Sender: FDA-Public Use
  Company Number: None

PATIENT
  Age: 70 Year
  Sex: Male
  Weight: 114 kg

DRUGS (6)
  1. VEKLURY [Suspect]
     Active Substance: REMDESIVIR
     Indication: COVID-19
     Dosage: ?          OTHER FREQUENCY:INITIAL X1;?
     Route: 042
     Dates: start: 20200831, end: 20200909
  2. CONVALESCENT PLASMA: [Concomitant]
  3. DEXAMETHASONE. [Concomitant]
     Active Substance: DEXAMETHASONE
  4. PANTOPRAZOLE [Concomitant]
     Active Substance: PANTOPRAZOLE
  5. ATORVASTATIN [Concomitant]
     Active Substance: ATORVASTATIN
  6. ENOXAPARIN [Concomitant]
     Active Substance: ENOXAPARIN

REACTIONS (7)
  - Hypoglycaemia [None]
  - Coagulopathy [None]
  - Fluid imbalance [None]
  - Multiple organ dysfunction syndrome [None]
  - Hepatic failure [None]
  - Acidosis [None]
  - Hyperkalaemia [None]

NARRATIVE: CASE EVENT DATE: 20200913
